FAERS Safety Report 8595792-4 (Version None)
Quarter: 2012Q3

REPORT INFORMATION
  Report Type: 
  Country: None (occurrence: None)
  Receive Date: 20120815
  Receipt Date: 20120112
  Transmission Date: 20120928
  Serious: Yes (Death, Hospitalization)
  Sender: FDA-Public Use
  Company Number: US-ROCHE-1098768

PATIENT
  Sex: Male

DRUGS (5)
  1. HEPARIN [Concomitant]
     Dosage: 5000 UNITS
  2. ACTIVASE [Suspect]
     Indication: MYOCARDIAL INFARCTION
     Route: 042
  3. ASPIRIN [Concomitant]
     Dosage: 1000 UNITS
     Route: 048
  4. COMPAZINE [Concomitant]
     Route: 042
  5. HEPARIN [Concomitant]
     Dosage: 20000 UNITS/500 UNITS/100 UNITS

REACTIONS (2)
  - DEATH [None]
  - BACK PAIN [None]
